FAERS Safety Report 9657631 (Version 1)
Quarter: 2013Q4

REPORT INFORMATION
  Report Type: Spontaneous
  Country: US (occurrence: US)
  Receive Date: 20131030
  Receipt Date: 20131030
  Transmission Date: 20140711
  Serious: Yes (Other)
  Sender: FDA-Public Use
  Company Number: US-PFIZER INC-2013309561

PATIENT
  Age: 12 Month
  Sex: Male
  Weight: 12.7 kg

DRUGS (2)
  1. CHILDREN^S MOTRIN [Suspect]
     Indication: PYREXIA
     Dosage: 3-4 TIMES A DAY
     Route: 048
     Dates: start: 20130903, end: 20130904
  2. VITAMINS NOS [Concomitant]
     Indication: ROUTINE HEALTH MAINTENANCE
     Dosage: 1/TBL
     Route: 065
     Dates: start: 201308

REACTIONS (1)
  - Convulsion [Recovering/Resolving]
